FAERS Safety Report 13194264 (Version 1)
Quarter: 2017Q1

REPORT INFORMATION
  Report Type: Spontaneous
  Country: US (occurrence: US)
  Receive Date: 20170207
  Receipt Date: 20170207
  Transmission Date: 20170428
  Serious: No
  Sender: FDA-Public Use
  Company Number: US-JAZZ-2016-US-020310

PATIENT
  Sex: Female

DRUGS (9)
  1. HYDROCHLOROTHIAZIDE. [Concomitant]
     Active Substance: HYDROCHLOROTHIAZIDE
  2. XYREM [Suspect]
     Active Substance: SODIUM OXYBATE
     Indication: DYSTONIA
     Dosage: 1 G, BID
     Route: 048
     Dates: start: 201609, end: 2016
  3. VESICARE [Concomitant]
     Active Substance: SOLIFENACIN SUCCINATE
  4. RIBAVIRIN. [Concomitant]
     Active Substance: RIBAVIRIN
  5. XANAX [Concomitant]
     Active Substance: ALPRAZOLAM
  6. CYCLOBENZAPRINE [Concomitant]
     Active Substance: CYCLOBENZAPRINE
  7. NOVASCAN [Concomitant]
  8. MOBIC [Concomitant]
     Active Substance: MELOXICAM
  9. ZEPATIER [Concomitant]
     Active Substance: ELBASVIR\GRAZOPREVIR

REACTIONS (1)
  - Therapeutic response decreased [Unknown]
